FAERS Safety Report 12919049 (Version 1)
Quarter: 2016Q4

REPORT INFORMATION
  Report Type: Spontaneous
  Country: US (occurrence: US)
  Receive Date: 20161108
  Receipt Date: 20161108
  Transmission Date: 20170207
  Serious: Yes (Hospitalization, Other)
  Sender: FDA-Public Use
  Company Number: US-BRISTOL-MYERS SQUIBB COMPANY-BMS-2015-094135

PATIENT
  Sex: Male

DRUGS (1)
  1. SPRYCEL [Suspect]
     Active Substance: DASATINIB
     Indication: CHRONIC MYELOID LEUKAEMIA
     Dosage: 100 MG, QD
     Route: 048
     Dates: start: 20151225

REACTIONS (7)
  - Transfusion [Unknown]
  - Rash pruritic [Unknown]
  - Headache [Unknown]
  - Platelet count decreased [Unknown]
  - Pneumonia [Unknown]
  - Haemoptysis [Unknown]
  - Platelet transfusion [Unknown]
